FAERS Safety Report 21653650 (Version 1)
Quarter: 2022Q4

REPORT INFORMATION
  Report Type: Spontaneous
  Country: PT (occurrence: None)
  Receive Date: 20221129
  Receipt Date: 20221129
  Transmission Date: 20230112
  Serious: Yes (Disabling, Other)
  Sender: FDA-Public Use
  Company Number: 2022A385867

PATIENT
  Sex: Male

DRUGS (4)
  1. ROSUVASTATIN [Suspect]
     Active Substance: ROSUVASTATIN
     Route: 065
     Dates: start: 202005, end: 202108
  2. SIMVASTATIN [Suspect]
     Active Substance: SIMVASTATIN
     Route: 065
     Dates: start: 201910, end: 202005
  3. ATORVASTATIN [Suspect]
     Active Substance: ATORVASTATIN
     Route: 065
     Dates: start: 202108
  4. EZETIMIBE [Concomitant]
     Active Substance: EZETIMIBE
     Route: 065
     Dates: start: 202005

REACTIONS (13)
  - Dermatomyositis [Not Recovered/Not Resolved]
  - Heliotrope rash [Not Recovered/Not Resolved]
  - Sclerodactylia [Not Recovered/Not Resolved]
  - Myalgia [Recovered/Resolved]
  - Thrombocytopenia [Not Recovered/Not Resolved]
  - Asthenia [Recovered/Resolved]
  - Hepatic cytolysis [Not Recovered/Not Resolved]
  - Cyanosis [Recovered/Resolved]
  - Skin lesion [Recovered/Resolved]
  - Lymphopenia [Not Recovered/Not Resolved]
  - Arthralgia [Recovered/Resolved]
  - Synovitis [Not Recovered/Not Resolved]
  - Arthritis [Recovered/Resolved]

NARRATIVE: CASE EVENT DATE: 20210201
